FAERS Safety Report 17702407 (Version 8)
Quarter: 2024Q4

REPORT INFORMATION
  Report Type: Report from Study
  Country: DE (occurrence: DE)
  Receive Date: 20200423
  Receipt Date: 20241223
  Transmission Date: 20250114
  Serious: Yes (Hospitalization, Other)
  Sender: BRISTOL-MYERS SQUIBB COMPANY
  Company Number: DE-BRISTOL-MYERS SQUIBB COMPANY-BMS-2020-001469

PATIENT
  Age: 71 Year
  Sex: Female
  Weight: 65 kg

DRUGS (5)
  1. OPDIVO [Suspect]
     Active Substance: NIVOLUMAB
     Indication: Malignant melanoma
     Dosage: 70 MILLIGRAM, Q3WK
     Route: 042
     Dates: start: 20191014, end: 20191104
  2. OPDIVO [Suspect]
     Active Substance: NIVOLUMAB
     Dosage: 65 MILLIGRAM, Q3WK
     Route: 042
     Dates: start: 20191125
  3. YERVOY [Suspect]
     Active Substance: IPILIMUMAB
     Indication: Malignant melanoma
     Dosage: 205.0 MILLIGRAM, Q3WK
     Route: 042
     Dates: start: 20191014, end: 20191104
  4. YERVOY [Suspect]
     Active Substance: IPILIMUMAB
     Dosage: 195 MILLIGRAM, Q3WK
     Route: 042
     Dates: start: 20191125
  5. POTASSIUM CHLORIDE [Concomitant]
     Active Substance: POTASSIUM CHLORIDE
     Indication: Product used for unknown indication
     Dosage: UNK

REACTIONS (12)
  - Autoimmune colitis [Recovered/Resolved]
  - Vomiting [Recovered/Resolved]
  - Hypokalaemia [Recovered/Resolved]
  - Pulmonary embolism [Recovered/Resolved with Sequelae]
  - Anaemia [Recovered/Resolved]
  - Chills [Unknown]
  - Nausea [Unknown]
  - Decreased appetite [Unknown]
  - Hypophagia [Unknown]
  - Gastritis [Unknown]
  - Cerebral disorder [Unknown]
  - Off label use [Unknown]

NARRATIVE: CASE EVENT DATE: 20191028
